FAERS Safety Report 8108061-3 (Version None)
Quarter: 2011Q4

REPORT INFORMATION
  Report Type: 
  Country: None (occurrence: None)
  Receive Date: 20111227
  Receipt Date: 20111017
  Transmission Date: 20120403
  Serious: Yes (Other)
  Sender: FDA-Public Use
  Company Number: PHEH2011US05657

PATIENT
  Age: 34 Year
  Sex: Female
  Weight: 93 kg

DRUGS (5)
  1. GILENYA [Suspect]
     Indication: MULTIPLE SCLEROSIS
     Dosage: 0.5 MG, QD, ORAL
     Route: 048
     Dates: start: 20110804, end: 20110901
  2. ALEVE [Concomitant]
  3. NEURONTIN [Concomitant]
  4. STEROIDS NOS [Concomitant]
  5. TYLENOL W/ CODEINE [Concomitant]

REACTIONS (9)
  - FATIGUE [None]
  - ALANINE AMINOTRANSFERASE INCREASED [None]
  - BLOOD BILIRUBIN INCREASED [None]
  - HEPATIC ENZYME INCREASED [None]
  - HEADACHE [None]
  - ASPARTATE AMINOTRANSFERASE INCREASED [None]
  - MUSCULOSKELETAL STIFFNESS [None]
  - LOCAL SWELLING [None]
  - MUSCLE SPASMS [None]
